FAERS Safety Report 12280876 (Version 2)
Quarter: 2016Q2

REPORT INFORMATION
  Report Type: Spontaneous
  Country: ES (occurrence: ES)
  Receive Date: 20160419
  Receipt Date: 20160516
  Transmission Date: 20160815
  Serious: Yes (Life-Threatening, Hospitalization, Other)
  Sender: FDA-Public Use
  Company Number: ES-ASTELLAS-2016US008862

PATIENT
  Age: 61 Year
  Sex: Female

DRUGS (64)
  1. FLUCONAZOL NORMON [Concomitant]
     Dosage: 100 MG, ONCE DAILY (EVERY 24 HOURS)
     Route: 042
     Dates: start: 20160217, end: 20160221
  2. CEFTAZIDIMA KABI [Concomitant]
     Indication: PRODUCT USED FOR UNKNOWN INDICATION
     Route: 042
     Dates: start: 20160126, end: 20160202
  3. METAMIZOL NORMON [Concomitant]
     Indication: PRODUCT USED FOR UNKNOWN INDICATION
     Route: 042
     Dates: start: 20160126, end: 20160128
  4. PROGRAF [Concomitant]
     Active Substance: TACROLIMUS\TACROLIMUS ANHYDROUS
     Route: 045
     Dates: start: 20160219, end: 20160222
  5. PROGRAF [Concomitant]
     Active Substance: TACROLIMUS\TACROLIMUS ANHYDROUS
     Route: 045
     Dates: start: 20160224, end: 20160225
  6. CYMEVENE                           /00784201/ [Concomitant]
     Active Substance: GANCICLOVIR
     Indication: PRODUCT USED FOR UNKNOWN INDICATION
     Dosage: 150 MG, ONCE DAILY (EVERY 24 HOURS)
     Route: 042
     Dates: start: 20160130, end: 20160203
  7. SOLTRIM [Concomitant]
     Active Substance: SULFAMETHOXAZOLE\TRIMETHOPRIM
     Indication: PRODUCT USED FOR UNKNOWN INDICATION
     Route: 042
     Dates: start: 20160130, end: 20160205
  8. INNOHEP [Concomitant]
     Active Substance: TINZAPARIN SODIUM
     Indication: PRODUCT USED FOR UNKNOWN INDICATION
     Dosage: 3500 UI, ONCE DAILY (EVERY 24 HOURS)
     Route: 058
     Dates: start: 20160202, end: 20160215
  9. PROGRAF [Concomitant]
     Active Substance: TACROLIMUS\TACROLIMUS ANHYDROUS
     Route: 045
     Dates: start: 20160225, end: 20160226
  10. PROGRAF [Concomitant]
     Active Substance: TACROLIMUS\TACROLIMUS ANHYDROUS
     Route: 045
     Dates: start: 20160227
  11. FENTANEST                          /00174601/ [Concomitant]
     Active Substance: FENTANYL CITRATE
     Indication: PRODUCT USED FOR UNKNOWN INDICATION
     Dosage: 3 ML PER HOUR
     Route: 065
     Dates: start: 20160130, end: 20160203
  12. CANCIDAS [Concomitant]
     Active Substance: CASPOFUNGIN ACETATE
     Indication: PRODUCT USED FOR UNKNOWN INDICATION
     Dosage: 50 MG, ONCE DAILY (EVERY 24 HOURS)
     Route: 042
     Dates: start: 20160131, end: 20160210
  13. NORADRENALINA BRAUN [Concomitant]
     Indication: PRODUCT USED FOR UNKNOWN INDICATION
     Dosage: 10 MG/ 100ML (2 ML PER HOUR), UNKNOWN FREQ.
     Route: 065
     Dates: start: 20160202, end: 20160203
  14. MEROPENEM KABI [Concomitant]
     Active Substance: MEROPENEM
     Indication: PRODUCT USED FOR UNKNOWN INDICATION
     Route: 042
     Dates: start: 20160202, end: 20160210
  15. MEROPENEM KABI [Concomitant]
     Active Substance: MEROPENEM
     Route: 042
     Dates: start: 20160213, end: 20160215
  16. ZYVOXID [Concomitant]
     Active Substance: LINEZOLID
     Route: 042
     Dates: start: 20160213, end: 20160222
  17. INNOHEP [Concomitant]
     Active Substance: TINZAPARIN SODIUM
     Dosage: 3.500 UI, ONCE DAILY (EVERY 24 HOURS)
     Route: 058
     Dates: start: 20160225
  18. METAMIZOL NORMON [Concomitant]
     Route: 042
     Dates: start: 20160204, end: 20160206
  19. URBASON                            /00049601/ [Concomitant]
     Active Substance: METHYLPREDNISOLONE
     Dosage: 150 MG, ONCE DAILY (EVERY 24 HOURS)
     Route: 042
     Dates: start: 20160127, end: 20160128
  20. PROGRAF [Concomitant]
     Active Substance: TACROLIMUS\TACROLIMUS ANHYDROUS
     Dosage: 5 MG, SNG, EVERY 12 HOURS
     Route: 065
     Dates: start: 20160210, end: 20160211
  21. PROGRAF [Concomitant]
     Active Substance: TACROLIMUS\TACROLIMUS ANHYDROUS
     Dosage: 5 MG TO 4 MG, EVERY 12 HOURS
     Route: 045
     Dates: start: 20160215, end: 20160216
  22. FUROSEMIDA GESFUR [Concomitant]
     Dosage: 1 G/250 ML (2.5 ML/HOUR)
     Route: 065
     Dates: start: 20160201, end: 20160202
  23. SALBUAIR [Concomitant]
     Indication: PRODUCT USED FOR UNKNOWN INDICATION
     Dosage: 5 MG NEBULIZED, EVERY FOUR HOURS
     Route: 065
     Dates: start: 20160129, end: 20160131
  24. MYCAMINE [Suspect]
     Active Substance: MICAFUNGIN SODIUM
     Indication: RESPIRATORY TRACT INFECTION
     Dosage: 100 MG, ONCE DAILY (EVERY 24 HOURS)
     Route: 042
     Dates: start: 20160130, end: 20160131
  25. SOLU MODERIN [Concomitant]
     Active Substance: METHYLPREDNISOLONE SODIUM SUCCINATE
     Indication: PRODUCT USED FOR UNKNOWN INDICATION
     Dosage: 125 MG, ONCE DAILY (EVERY 24 HOURS)
     Route: 042
     Dates: start: 20160128, end: 20160129
  26. METOCLOPRAMIDA KERN PHARMA [Concomitant]
     Route: 042
     Dates: start: 20160131, end: 20160202
  27. LACTULOSA LAINCO [Concomitant]
     Dosage: 30 G, ONCE DAILY (EVERY 24 HOURS)
     Route: 048
     Dates: start: 20160206, end: 20160207
  28. HIDROSALURETIL [Concomitant]
     Active Substance: HYDROCHLOROTHIAZIDE
     Indication: PRODUCT USED FOR UNKNOWN INDICATION
     Route: 048
     Dates: start: 20160204, end: 20160208
  29. NORFLOXACINO NORMON [Concomitant]
     Indication: PRODUCT USED FOR UNKNOWN INDICATION
     Route: 065
     Dates: start: 20160126, end: 20160131
  30. METRONIDAZOL G.E.S. [Concomitant]
     Indication: PRODUCT USED FOR UNKNOWN INDICATION
     Route: 042
     Dates: start: 20160126, end: 20160202
  31. URBASON                            /00049601/ [Concomitant]
     Active Substance: METHYLPREDNISOLONE
     Indication: PRODUCT USED FOR UNKNOWN INDICATION
     Dosage: 180 MG, ONCE DAILY (EVERY 24 HOURS)
     Route: 042
     Dates: start: 20160126, end: 20160127
  32. SIMULECT [Concomitant]
     Active Substance: BASILIXIMAB
     Indication: PRODUCT USED FOR UNKNOWN INDICATION
     Route: 042
     Dates: start: 20160126, end: 20160127
  33. PROGRAF [Concomitant]
     Active Substance: TACROLIMUS\TACROLIMUS ANHYDROUS
     Dosage: 4 MG, SNG, EVERY 12 HOURS
     Route: 065
     Dates: start: 20160208, end: 20160210
  34. PROGRAF [Concomitant]
     Active Substance: TACROLIMUS\TACROLIMUS ANHYDROUS
     Dosage: 7 MG, SNG, EVERY 12 HOURS
     Route: 065
     Dates: start: 20160213, end: 20160215
  35. PROGRAF [Concomitant]
     Active Substance: TACROLIMUS\TACROLIMUS ANHYDROUS
     Route: 045
     Dates: start: 20160223, end: 20160224
  36. FUROSEMIDA GESFUR [Concomitant]
     Dosage: 1 G/250 ML (5 ML/HOUR)
     Route: 065
     Dates: start: 20160202, end: 20160206
  37. MYCAMINE [Suspect]
     Active Substance: MICAFUNGIN SODIUM
     Dosage: 100 MG, ONCE DAILY (EVERY 24 HOURS)
     Route: 042
     Dates: start: 20160213, end: 20160213
  38. FLUCONAZOL NORMON [Concomitant]
     Indication: PRODUCT USED FOR UNKNOWN INDICATION
     Dosage: 200 MG, ONCE DAILY (24 HOURS)
     Route: 042
     Dates: start: 20160126, end: 20160130
  39. METAMIZOL NORMON [Concomitant]
     Route: 042
     Dates: start: 20160206, end: 20160211
  40. PANTOPRAZOL NORMON [Concomitant]
     Indication: PRODUCT USED FOR UNKNOWN INDICATION
     Route: 042
     Dates: start: 20160126, end: 20160202
  41. PROGRAF [Concomitant]
     Active Substance: TACROLIMUS\TACROLIMUS ANHYDROUS
     Route: 045
     Dates: start: 20160202, end: 20160203
  42. PROGRAF [Concomitant]
     Active Substance: TACROLIMUS\TACROLIMUS ANHYDROUS
     Route: 045
     Dates: start: 20160216, end: 20160218
  43. FUROSEMIDA GESFUR [Concomitant]
     Dosage: 1 G/250 ML (5 ML/HOUR)
     Route: 042
     Dates: start: 20160128, end: 20160130
  44. SOLU MODERIN [Concomitant]
     Active Substance: METHYLPREDNISOLONE SODIUM SUCCINATE
     Dosage: 100 MG, ONCE DAILY (EVERY 24 HOURS)
     Route: 042
     Dates: start: 20160129, end: 20160130
  45. NIMBEX [Concomitant]
     Active Substance: CISATRACURIUM BESYLATE
     Indication: PRODUCT USED FOR UNKNOWN INDICATION
     Dosage: 100 MG/ 200 ML A 11/HOUR UNKNOWN FREQ.
     Route: 065
     Dates: start: 20160130, end: 20160201
  46. METOCLOPRAMIDA KERN PHARMA [Concomitant]
     Indication: PRODUCT USED FOR UNKNOWN INDICATION
     Route: 042
     Dates: start: 20160126, end: 20160129
  47. METOCLOPRAMIDA KERN PHARMA [Concomitant]
     Route: 042
     Dates: start: 20160215, end: 20160221
  48. TRANGOREX [Concomitant]
     Active Substance: AMIODARONE HYDROCHLORIDE
     Dosage: 200 MG, ONCE DAILY (EVERY 24 HOURS)
     Route: 048
     Dates: start: 20160204, end: 20160219
  49. POTASION [Concomitant]
     Active Substance: POTASSIUM CHLORIDE
     Indication: PRODUCT USED FOR UNKNOWN INDICATION
     Dosage: 20 ML, EVERY 4 HOURS
     Route: 048
     Dates: start: 20160213, end: 20160215
  50. PROGRAF [Concomitant]
     Active Substance: TACROLIMUS\TACROLIMUS ANHYDROUS
     Indication: PRODUCT USED FOR UNKNOWN INDICATION
     Route: 045
     Dates: start: 20160126, end: 20160202
  51. PROGRAF [Concomitant]
     Active Substance: TACROLIMUS\TACROLIMUS ANHYDROUS
     Route: 045
     Dates: start: 20160226, end: 20160227
  52. FUROSEMIDA GESFUR [Concomitant]
     Dosage: 1 G/250 ML (2 ML/HOUR)
     Route: 065
     Dates: start: 20160207, end: 20160209
  53. SALBUAIR [Concomitant]
     Route: 065
     Dates: start: 20160131, end: 20160202
  54. METOCLOPRAMIDA KERN PHARMA [Concomitant]
     Route: 048
     Dates: start: 20160202, end: 20160203
  55. NORADRENALINA BRAUN [Concomitant]
     Dosage: 10 MG/ 100ML (PARA TAM } 70), UNKNOWN FREQ.
     Route: 065
     Dates: start: 20160213, end: 20160215
  56. ZYVOXID [Concomitant]
     Active Substance: LINEZOLID
     Indication: PRODUCT USED FOR UNKNOWN INDICATION
     Route: 042
     Dates: start: 20160202, end: 20160210
  57. LACTULOSA LAINCO [Concomitant]
     Indication: PRODUCT USED FOR UNKNOWN INDICATION
     Route: 048
     Dates: start: 20160202, end: 20160204
  58. TRANGOREX [Concomitant]
     Active Substance: AMIODARONE HYDROCHLORIDE
     Indication: PRODUCT USED FOR UNKNOWN INDICATION
     Dosage: 600 MG, ONCE DAILY (EVERY 24 HOURS)
     Route: 042
     Dates: start: 20160203, end: 20160204
  59. PANTOPRAZOL NORMON [Concomitant]
     Dosage: 40 MG, ONCE DAILY (EVERY 24 HOURS)
     Route: 048
     Dates: start: 20160202, end: 20160221
  60. PROGRAF [Concomitant]
     Active Substance: TACROLIMUS\TACROLIMUS ANHYDROUS
     Route: 045
     Dates: start: 20160218, end: 20160219
  61. PROGRAF [Concomitant]
     Active Substance: TACROLIMUS\TACROLIMUS ANHYDROUS
     Route: 045
     Dates: start: 20160222, end: 20160223
  62. FUROSEMIDA GESFUR [Concomitant]
     Indication: PRODUCT USED FOR UNKNOWN INDICATION
     Route: 042
     Dates: start: 20160127, end: 20160128
  63. FUROSEMIDA GESFUR [Concomitant]
     Dosage: 1 G/250 ML (11 ML/HOUR)
     Route: 065
     Dates: start: 20160213, end: 20160215
  64. MEROPENEM KABI [Concomitant]
     Active Substance: MEROPENEM
     Route: 042
     Dates: start: 20160215, end: 20160222

REACTIONS (6)
  - Haemolysis [Recovered/Resolved]
  - Respiratory failure [Recovered/Resolved]
  - Hypotension [Recovered/Resolved]
  - Acute kidney injury [Recovered/Resolved]
  - Haematuria [Unknown]
  - Bradycardia [Recovered/Resolved]

NARRATIVE: CASE EVENT DATE: 20160213
